FAERS Safety Report 8857417 (Version 1)
Quarter: 2012Q4

REPORT INFORMATION
  Report Type: 
  Country: US (occurrence: US)
  Receive Date: 20121024
  Receipt Date: 20121024
  Transmission Date: 20130627
  Serious: Yes (Other)
  Sender: FDA-Public Use
  Company Number: US-BAYER-2012-108886

PATIENT
  Age: 23 Year
  Sex: Female
  Weight: 79.37 kg

DRUGS (2)
  1. ALEVE CAPLET/TABLET,MIDOL EXTENDED RELIEF CAPLET [Suspect]
     Indication: HEADACHE
     Dosage: UNK
     Route: 048
     Dates: start: 20121014
  2. ALEVE GELCAP [Concomitant]
     Dosage: Daily dose 2 DF
     Route: 048
     Dates: start: 20121013, end: 20121013

REACTIONS (2)
  - Somnolence [Not Recovered/Not Resolved]
  - Crying [Not Recovered/Not Resolved]
